FAERS Safety Report 15655424 (Version 2)
Quarter: 2018Q4

REPORT INFORMATION
  Report Type: Spontaneous
  Country: US (occurrence: US)
  Receive Date: 20181126
  Receipt Date: 20181224
  Transmission Date: 20190205
  Serious: No
  Sender: FDA-Public Use
  Company Number: US-ASTRAZENECA-2018SF54180

PATIENT
  Age: 48 Year
  Sex: Female

DRUGS (1)
  1. ESOMEPRAZOLE MAGNESIUM. [Suspect]
     Active Substance: ESOMEPRAZOLE MAGNESIUM
     Indication: HYPERCHLORHYDRIA
     Dosage: 20.0MG UNKNOWN
     Route: 048

REACTIONS (2)
  - Vitamin B12 abnormal [Unknown]
  - Intentional product misuse [Unknown]
